FAERS Safety Report 10176223 (Version 1)
Quarter: 2014Q2

REPORT INFORMATION
  Report Type: Spontaneous
  Country: US (occurrence: None)
  Receive Date: 20140515
  Receipt Date: 20140515
  Transmission Date: 20141212
  Serious: Yes (Hospitalization, Other)
  Sender: FDA-Public Use
  Company Number: None

PATIENT
  Age: 84 Year
  Sex: Female
  Weight: 42.18 kg

DRUGS (11)
  1. LEVOFLOXACIN [Suspect]
     Indication: PNEUMONIA
     Dosage: THERAPY?2/27/14 TO  2/30/2014??500 MG?1 PILL?ONCE DAILY ?BY MOUTH
     Route: 048
     Dates: start: 20140227
  2. CELEBREX [Concomitant]
  3. FLONASE [Concomitant]
  4. PROTONIX [Concomitant]
  5. AMBIEN [Concomitant]
  6. MULTIVITAMIN [Concomitant]
  7. COQ10 [Concomitant]
  8. C [Concomitant]
  9. B6 [Concomitant]
  10. B12 [Concomitant]
  11. MAGNESIUM [Concomitant]

REACTIONS (2)
  - Hallucination, visual [None]
  - Vertigo [None]
